FAERS Safety Report 12278266 (Version 1)
Quarter: 2016Q2

REPORT INFORMATION
  Report Type: Spontaneous
  Country: MX (occurrence: MX)
  Receive Date: 20160418
  Receipt Date: 20160418
  Transmission Date: 20160815
  Serious: Yes (Hospitalization, Other)
  Sender: FDA-Public Use
  Company Number: MX-SA-2016SA073801

PATIENT
  Sex: Female
  Weight: 68 kg

DRUGS (3)
  1. APROVEL [Suspect]
     Active Substance: IRBESARTAN
     Indication: HYPERTENSION
     Dosage: STRENGTH: 150 MG
     Route: 048
     Dates: start: 201310
  2. ASPIRIN. [Concomitant]
     Active Substance: ASPIRIN
     Dosage: (100 MG, TABLET)
     Route: 048
  3. APROVEL [Suspect]
     Active Substance: IRBESARTAN
     Indication: HYPERTENSION
     Dosage: STRENGTH: 300 MG
     Route: 048
     Dates: start: 1997, end: 2010

REACTIONS (6)
  - Breast cancer [Recovered/Resolved]
  - Headache [Recovered/Resolved]
  - Dizziness [Recovered/Resolved]
  - Hypertension [Recovered/Resolved]
  - Hypertension [Not Recovered/Not Resolved]
  - Back pain [Not Recovered/Not Resolved]

NARRATIVE: CASE EVENT DATE: 2005
